FAERS Safety Report 6444333-6 (Version None)
Quarter: 2009Q4

REPORT INFORMATION
  Report Type: 
  Country: None (occurrence: None)
  Receive Date: 20091117
  Receipt Date: 20091117
  Transmission Date: 20100525
  Serious: Yes (Other)
  Sender: FDA-Public Use
  Company Number: None

PATIENT
  Age: 65 Year
  Sex: Male
  Weight: 99.3377 kg

DRUGS (1)
  1. FLUOXETINE [Suspect]
     Indication: POST-TRAUMATIC STRESS DISORDER
     Dosage: 40MG DAILY PO UNKNOWN DATES OF USE
     Route: 048
     Dates: start: 19850101, end: 19850101

REACTIONS (2)
  - AGGRESSION [None]
  - PSYCHOTIC DISORDER [None]
